FAERS Safety Report 5649174-5 (Version None)
Quarter: 2008Q1

REPORT INFORMATION
  Report Type: 
  Country: None (occurrence: None)
  Receive Date: 20080304
  Receipt Date: 20080225
  Transmission Date: 20080703
  Serious: Yes (Hospitalization)
  Sender: FDA-Public Use
  Company Number: US-ALLERGAN-0802400US

PATIENT
  Sex: Male

DRUGS (2)
  1. BOTOX [Suspect]
     Indication: URINARY TRACT DISORDER
     Dosage: UNK, SINGLE
     Route: 050
  2. BOTOX [Suspect]
     Indication: BENIGN PROSTATIC HYPERPLASIA

REACTIONS (1)
  - ROTATOR CUFF SYNDROME [None]
